FAERS Safety Report 21634629 (Version 1)
Quarter: 2022Q4

REPORT INFORMATION
  Report Type: Spontaneous
  Country: US (occurrence: US)
  Receive Date: 20221123
  Receipt Date: 20221123
  Transmission Date: 20230112
  Serious: No
  Sender: FDA-Public Use
  Company Number: US-ALMIRALL, LLC-2021AQU000490

PATIENT
  Sex: Female

DRUGS (1)
  1. SEYSARA [Suspect]
     Active Substance: SARECYCLINE HYDROCHLORIDE
     Indication: Product used for unknown indication
     Dosage: 100 MG, QD

REACTIONS (2)
  - Hypertension [Recovering/Resolving]
  - Chest pain [Recovering/Resolving]
